FAERS Safety Report 20317176 (Version 2)
Quarter: 2022Q4

REPORT INFORMATION
  Report Type: Spontaneous
  Country: DE (occurrence: DE)
  Receive Date: 20220110
  Receipt Date: 20221213
  Transmission Date: 20230113
  Serious: Yes (Hospitalization)
  Sender: FDA-Public Use
  Company Number: DE-ADRED-07401-01

PATIENT
  Age: 70 Year
  Sex: Female

DRUGS (12)
  1. METOPROLOL [Suspect]
     Active Substance: METOPROLOL
     Indication: Product used for unknown indication
     Dosage: 50 MILLIGRAM (50 MG, 1-0-1-0)
     Route: 048
  2. CANDESARTAN CILEXETIL [Suspect]
     Active Substance: CANDESARTAN CILEXETIL
     Indication: Product used for unknown indication
     Dosage: 16 MILLIGRAM (16 MG, 1-0-1-0)
     Route: 048
  3. ACLIDINIUM BROMIDE\FORMOTEROL FUMARATE [Concomitant]
     Active Substance: ACLIDINIUM BROMIDE\FORMOTEROL FUMARATE
     Dosage: 346|12 ?G, 1-0-1-0
  4. LEFLUNOMIDE [Concomitant]
     Active Substance: LEFLUNOMIDE
     Dosage: 15 MILLIGRAM (15 MG, 1-0-0-0)
     Route: 048
  5. PANTOPRAZOLE SODIUM [Concomitant]
     Active Substance: PANTOPRAZOLE SODIUM
     Dosage: 40 MILLIGRAM (40 MG, 1-0-1-0)
     Route: 048
  6. ROSUVASTATIN AUROBINDO [Concomitant]
     Dosage: 20 MILLIGRAM (20 MG, 1-0-0-0)
     Route: 048
  7. BUDESONIDE\FORMOTEROL\GLYCOPYRRONIUM [Concomitant]
     Active Substance: BUDESONIDE\FORMOTEROL\GLYCOPYRRONIUM
     Dosage: 5|7.2|160 ?G, 1-0-0-0
  8. ASPIRIN [Concomitant]
     Active Substance: ASPIRIN
     Dosage: 100 MILLIGRAM (100 MG, 1-0-0-0)
     Route: 048
  9. EZETIMIBE [Concomitant]
     Active Substance: EZETIMIBE
     Dosage: 10 MILLIGRAM (10 MG, 0-0-1-0)
     Route: 048
  10. IPRAMOL TEVA [Concomitant]
     Dosage: 0.5|2.5 MG, 1-0-1-0
     Route: 048
  11. IBUPROFEN [Concomitant]
     Active Substance: IBUPROFEN
     Dosage: IF NECESSARY
     Route: 048
  12. XIGDUO XR [Concomitant]
     Active Substance: DAPAGLIFLOZIN PROPANEDIOL\METFORMIN HYDROCHLORIDE
     Dosage: 5|1000 MG, 1-0-1-0
     Route: 048

REACTIONS (3)
  - Hypotension [Unknown]
  - Tachycardia [Unknown]
  - Dizziness [Unknown]
